FAERS Safety Report 23639533 (Version 2)
Quarter: 2024Q1

REPORT INFORMATION
  Report Type: Spontaneous
  Country: US (occurrence: US)
  Receive Date: 20240316
  Receipt Date: 20240331
  Transmission Date: 20240410
  Serious: Yes (Hospitalization)
  Sender: FDA-Public Use
  Company Number: US-TEVA-VS-3167191

PATIENT
  Age: 61 Year
  Sex: Female

DRUGS (8)
  1. LOPERAMIDE [Suspect]
     Active Substance: LOPERAMIDE
     Indication: Apoptotic colonopathy
     Route: 065
  2. DIPHENOXYLATE [Suspect]
     Active Substance: DIPHENOXYLATE
     Indication: Apoptotic colonopathy
     Route: 065
  3. BENDAMUSTINE [Suspect]
     Active Substance: BENDAMUSTINE
     Indication: Marginal zone lymphoma
     Route: 065
  4. OBINUTUZUMAB [Suspect]
     Active Substance: OBINUTUZUMAB
     Indication: Marginal zone lymphoma
     Route: 065
  5. OCTREOTIDE [Suspect]
     Active Substance: OCTREOTIDE\OCTREOTIDE ACETATE
     Indication: Apoptotic colonopathy
     Route: 065
  6. CHOLESTYRAMINE [Suspect]
     Active Substance: CHOLESTYRAMINE
     Indication: Apoptotic colonopathy
     Route: 065
  7. RITUXIMAB [Suspect]
     Active Substance: RITUXIMAB
     Indication: Marginal zone lymphoma
     Route: 065
  8. OPIUM [Suspect]
     Active Substance: OPIUM
     Indication: Apoptotic colonopathy
     Dosage: TINCTURE OF OPIUM
     Route: 065

REACTIONS (9)
  - Hypogammaglobulinaemia [Unknown]
  - Diarrhoea [Unknown]
  - Apoptotic colonopathy [Recovering/Resolving]
  - Malnutrition [Unknown]
  - Dehydration [Unknown]
  - Acute kidney injury [Unknown]
  - Drug ineffective [Unknown]
  - Blood electrolytes abnormal [Unknown]
  - Encephalopathy [Unknown]
